FAERS Safety Report 20425596 (Version 1)
Quarter: 2022Q1

REPORT INFORMATION
  Report Type: Spontaneous
  Country: ES (occurrence: ES)
  Receive Date: 20220204
  Receipt Date: 20220204
  Transmission Date: 20220424
  Serious: No
  Sender: FDA-Public Use
  Company Number: ES-EXELIXIS-CABO-21039368

PATIENT
  Age: 59 Year
  Sex: Male

DRUGS (2)
  1. CABOMETYX [Suspect]
     Active Substance: CABOZANTINIB S-MALATE
     Indication: Renal cell carcinoma
     Dosage: 60 MG
     Dates: start: 201912
  2. CABOMETYX [Suspect]
     Active Substance: CABOZANTINIB S-MALATE
     Dosage: 40 MG

REACTIONS (6)
  - Skin toxicity [Unknown]
  - Mucosal inflammation [Unknown]
  - Dysphonia [Unknown]
  - Decreased appetite [Unknown]
  - Nausea [Unknown]
  - Malignant neoplasm progression [Unknown]
